FAERS Safety Report 16153602 (Version 2)
Quarter: 2019Q3

REPORT INFORMATION
  Report Type: Other
  Country: US (occurrence: US)
  Receive Date: 20190403
  Receipt Date: 20190726
  Transmission Date: 20191004
  Serious: Yes (Hospitalization, Other)
  Sender: FDA-Public Use
  Company Number: US-BIOVITRUM-2019US0633

PATIENT
  Sex: Female

DRUGS (3)
  1. KINERET [Suspect]
     Active Substance: ANAKINRA
     Indication: RHEUMATOID ARTHRITIS
     Route: 058
  2. KINERET [Suspect]
     Active Substance: ANAKINRA
     Indication: GOUT
  3. KINERET [Suspect]
     Active Substance: ANAKINRA
     Indication: OSTEOARTHRITIS

REACTIONS (3)
  - Breast cancer [Unknown]
  - Paralysis [Recovered/Resolved]
  - Off label use [Not Recovered/Not Resolved]
